FAERS Safety Report 6296822-5 (Version None)
Quarter: 2009Q3

REPORT INFORMATION
  Report Type: 
  Country: None (occurrence: None)
  Receive Date: 20090804
  Receipt Date: 20090723
  Transmission Date: 20100115
  Serious: Yes (Other)
  Sender: FDA-Public Use
  Company Number: PHHY2009AU17215

PATIENT
  Sex: Female
  Weight: 74.5 kg

DRUGS (1)
  1. ACLASTA [Suspect]
     Indication: OSTEOPOROSIS
     Dosage: UNK
     Dates: start: 20090429, end: 20090429

REACTIONS (5)
  - LIP PAIN [None]
  - LIP SWELLING [None]
  - MILIA [None]
  - THROAT TIGHTNESS [None]
  - URTICARIA [None]
